FAERS Safety Report 7677115-8 (Version None)
Quarter: 2011Q3

REPORT INFORMATION
  Report Type: 
  Country: None (occurrence: None)
  Receive Date: 20110811
  Receipt Date: 20110801
  Transmission Date: 20111222
  Serious: Yes (Hospitalization)
  Sender: FDA-Public Use
  Company Number: US-JNJFOC-20080102913

PATIENT
  Sex: Male
  Weight: 48 kg

DRUGS (9)
  1. METRONIDAZOLE [Concomitant]
  2. LEVAQUIN [Concomitant]
  3. INFLIXIMAB [Suspect]
     Route: 042
     Dates: start: 20070101
  4. INFLIXIMAB [Suspect]
     Indication: COLITIS ULCERATIVE
     Route: 042
     Dates: start: 20071102
  5. PREDNISONE [Concomitant]
  6. INFLIXIMAB [Suspect]
     Route: 042
     Dates: start: 20071213
  7. INFLIXIMAB [Suspect]
     Route: 042
     Dates: start: 20080111
  8. INFLIXIMAB [Suspect]
     Route: 042
     Dates: start: 20081030
  9. MESALAMINE [Concomitant]

REACTIONS (2)
  - COLITIS ULCERATIVE [None]
  - VOMITING [None]
